FAERS Safety Report 8075703-0 (Version None)
Quarter: 2012Q1

REPORT INFORMATION
  Report Type: 
  Country: None (occurrence: None)
  Receive Date: 20120125
  Receipt Date: 20120125
  Transmission Date: 20120608
  Serious: Yes (Other)
  Sender: FDA-Public Use
  Company Number: None

PATIENT
  Age: 55 Year
  Sex: Female
  Weight: 66 kg

DRUGS (4)
  1. SALAGEN [Suspect]
     Indication: SJOGREN'S SYNDROME
     Dates: start: 20110901
  2. FLEXERIL [Suspect]
     Indication: FIBROMYALGIA
  3. MOBIC [Concomitant]
  4. VIVELLE-DOT [Concomitant]

REACTIONS (2)
  - PRODUCT COMPOUNDING QUALITY ISSUE [None]
  - REACTION TO DRUG EXCIPIENTS [None]
